FAERS Safety Report 8989115 (Version 1)
Quarter: 2012Q4

REPORT INFORMATION
  Report Type: 
  Country: IT (occurrence: IT)
  Receive Date: 20121228
  Receipt Date: 20121228
  Transmission Date: 20130627
  Serious: Yes (Other)
  Sender: FDA-Public Use
  Company Number: IT-ELI_LILLY_AND_COMPANY-IT201212006858

PATIENT
  Age: 70 Year
  Sex: Male

DRUGS (5)
  1. PROZAC [Suspect]
     Indication: ANXIETY
     Dosage: 20 mg, qd
     Route: 048
     Dates: start: 20121213, end: 20121213
  2. LORAZEPAM [Concomitant]
     Indication: ANXIETY
     Dosage: 8 mg, UNK
     Route: 048
     Dates: start: 20121213, end: 20121213
  3. ACETYLSALICYLIC ACID [Concomitant]
     Dosage: 100 mg, UNK
  4. HYDROXYUREA [Concomitant]
     Dosage: 500 mg, UNK
  5. GLICLAZIDE [Concomitant]

REACTIONS (3)
  - Syncope [Recovering/Resolving]
  - Drug abuse [Recovering/Resolving]
  - Off label use [Recovered/Resolved]
